FAERS Safety Report 13844113 (Version 2)
Quarter: 2017Q3

REPORT INFORMATION
  Report Type: Spontaneous
  Country: US (occurrence: US)
  Receive Date: 20170808
  Receipt Date: 20170818
  Transmission Date: 20171127
  Serious: No
  Sender: FDA-Public Use
  Company Number: US-ELI_LILLY_AND_COMPANY-US201707008681

PATIENT
  Sex: Female

DRUGS (3)
  1. IRINOTECAN [Concomitant]
     Active Substance: IRINOTECAN
     Indication: COLORECTAL CANCER METASTATIC
  2. ERBITUX [Suspect]
     Active Substance: CETUXIMAB
     Indication: COLORECTAL CANCER METASTATIC
     Dosage: UNK UNK, MONTHLY (1/M)
     Route: 042
     Dates: start: 2013
  3. 5 FU [Concomitant]
     Active Substance: FLUOROURACIL
     Indication: COLORECTAL CANCER METASTATIC

REACTIONS (13)
  - Localised infection [Recovered/Resolved]
  - Stomatitis [Recovered/Resolved]
  - Rash [Unknown]
  - Skin fissures [Recovered/Resolved]
  - Hypotension [Recovered/Resolved]
  - Vomiting [Recovered/Resolved]
  - Skin ulcer [Recovered/Resolved]
  - Dermatitis acneiform [Unknown]
  - Off label use [Unknown]
  - Hair disorder [Unknown]
  - Tongue discolouration [Unknown]
  - Nausea [Unknown]
  - Alopecia [Recovered/Resolved]

NARRATIVE: CASE EVENT DATE: 2013
